FAERS Safety Report 23180915 (Version 1)
Quarter: 2023Q4

REPORT INFORMATION
  Report Type: Spontaneous
  Country: PH (occurrence: PH)
  Receive Date: 20231114
  Receipt Date: 20231114
  Transmission Date: 20240109
  Serious: Yes (Life-Threatening, Other)
  Sender: FDA-Public Use
  Company Number: PH-TORRENT-00000052

PATIENT
  Age: 72 Year
  Sex: Male

DRUGS (1)
  1. CLOPIDOGREL BISULFATE [Suspect]
     Active Substance: CLOPIDOGREL BISULFATE
     Indication: Anticoagulant therapy
     Dosage: ONE TABLE ONCE DAILY
     Route: 048
     Dates: start: 20220704, end: 20221213

REACTIONS (2)
  - Abdominal pain upper [Recovered/Resolved]
  - Abdominal wall haemorrhage [Recovered/Resolved]

NARRATIVE: CASE EVENT DATE: 20221206
